FAERS Safety Report 8555626-0 (Version None)
Quarter: 2012Q3

REPORT INFORMATION
  Report Type: 
  Country: None (occurrence: None)
  Receive Date: 20120731
  Receipt Date: 20120717
  Transmission Date: 20120928
  Serious: Yes (Other)
  Sender: FDA-Public Use
  Company Number: CO-ELI_LILLY_AND_COMPANY-CO201207001463

PATIENT
  Age: 16 Year
  Sex: Female
  Weight: 70 kg

DRUGS (2)
  1. STRATTERA [Suspect]
     Dosage: 60 MG, UNKNOWN
     Route: 048
     Dates: end: 20120612
  2. STRATTERA [Suspect]
     Dosage: UNK, UNKNOWN
     Route: 048
     Dates: start: 20111020

REACTIONS (2)
  - SUICIDAL IDEATION [None]
  - CRYING [None]
